FAERS Safety Report 7477607-0 (Version None)
Quarter: 2011Q2

REPORT INFORMATION
  Report Type: 
  Country: None (occurrence: None)
  Receive Date: 20110513
  Receipt Date: 20110503
  Transmission Date: 20111010
  Serious: Yes (Hospitalization)
  Sender: FDA-Public Use
  Company Number: US-JNJFOC-20110406314

PATIENT
  Sex: Male

DRUGS (24)
  1. PREDNISONE [Suspect]
     Indication: PROSTATE CANCER METASTATIC
     Route: 048
  2. MILK OF MAGNESIA TAB [Concomitant]
     Indication: ABDOMINAL PAIN
     Route: 048
  3. PREDNISONE [Suspect]
     Route: 048
  4. ACETAMINOPHEN [Concomitant]
     Indication: PELVIC PAIN
     Route: 048
  5. CALCIUM [Concomitant]
     Indication: GENERAL PHYSICAL CONDITION
     Route: 048
  6. FISH OIL [Concomitant]
     Indication: GENERAL PHYSICAL CONDITION
     Route: 048
  7. LEUPROLIDE ACETATE [Concomitant]
     Indication: PROSTATE CANCER
     Route: 030
  8. MULTI-VITAMINS [Concomitant]
     Indication: GENERAL PHYSICAL CONDITION
     Route: 048
  9. ZYTIGA [Suspect]
     Indication: PROSTATE CANCER METASTATIC
     Route: 048
  10. ACETAMINOPHEN AND HYDROCODONE BITARTRATE [Concomitant]
     Indication: CANCER PAIN
     Route: 048
  11. GABAPENTIN [Concomitant]
     Indication: CANCER PAIN
     Route: 048
  12. AUGMENTIN [Concomitant]
     Indication: CANCER PAIN
     Route: 048
  13. ESCITALOPRAM [Concomitant]
     Indication: DEPRESSION
     Route: 048
  14. TRAMADOL HCL [Concomitant]
     Indication: CANCER PAIN
     Route: 048
  15. ACETAMINOPHEN [Concomitant]
     Indication: BACK PAIN
     Route: 048
  16. ZYTIGA [Suspect]
     Route: 048
  17. ESCITALOPRAM [Concomitant]
     Indication: ANXIETY
     Route: 048
  18. VITAMIN D [Concomitant]
     Indication: GENERAL PHYSICAL CONDITION
     Route: 048
  19. LEUPROLIDE ACETATE [Concomitant]
     Route: 030
  20. VITAMIN C [Concomitant]
     Indication: GENERAL PHYSICAL CONDITION
     Route: 048
  21. ENOXAPARIN SODIUM [Concomitant]
     Indication: PULMONARY EMBOLISM
     Dosage: 100 MG/ML SUBCUTANEOUS SOLUTION
     Route: 058
  22. EPIVIR-HBV [Concomitant]
     Indication: HEPATITIS B
     Route: 048
  23. LEUPROLIDE ACETATE [Concomitant]
     Indication: HORMONE THERAPY
     Route: 030
  24. LEUPROLIDE ACETATE [Concomitant]
     Route: 030

REACTIONS (1)
  - SEPSIS [None]
